FAERS Safety Report 10028976 (Version 1)
Quarter: 2014Q1

REPORT INFORMATION
  Report Type: Report from Study
  Country: NL (occurrence: NL)
  Receive Date: 20140321
  Receipt Date: 20140321
  Transmission Date: 20141002
  Serious: Yes (Hospitalization)
  Sender: FDA-Public Use
  Company Number: PHHY2014NL034080

PATIENT
  Age: 79 Year
  Sex: Male

DRUGS (4)
  1. SANDOSTATIN LAR [Suspect]
     Indication: NEUROENDOCRINE TUMOUR
     Dosage: 30 MG, (30 MG/ 2 ML) ONCE EVERY 2 WEEKS
     Route: 030
  2. SANDOSTATIN LAR [Suspect]
     Dosage: 30 MG, (30 MG/ 2 ML) ONCE EVERY 2 WEEKS
     Route: 030
     Dates: start: 20131128
  3. SANDOSTATIN LAR [Suspect]
     Dosage: 30 MG, (30 MG/ 2 ML) ONCE EVERY 2 WEEKS
     Route: 030
     Dates: start: 20140305
  4. SANDOSTATIN LAR [Suspect]
     Dosage: 30 MG, (30 MG/ 2 ML) ONCE EVERY 2 WEEKS
     Route: 030
     Dates: start: 20140319

REACTIONS (2)
  - Diarrhoea [Not Recovered/Not Resolved]
  - Malaise [Not Recovered/Not Resolved]
